FAERS Safety Report 7263484-X (Version None)
Quarter: 2011Q1

REPORT INFORMATION
  Report Type: 
  Country: None (occurrence: None)
  Receive Date: 20110130
  Receipt Date: 20101213
  Transmission Date: 20110831
  Serious: Yes (Other)
  Sender: FDA-Public Use
  Company Number: US-ABBOTT-10P-163-0689407-00

PATIENT
  Sex: Female
  Weight: 79.45 kg

DRUGS (4)
  1. HUMIRA [Suspect]
     Indication: RHEUMATOID ARTHRITIS
     Dates: start: 20050101, end: 20101001
  2. METHOTREXATE [Concomitant]
     Indication: RHEUMATOID ARTHRITIS
     Dates: end: 20101001
  3. UNKNOWN ANTIBIOTIC [Concomitant]
     Indication: SURGERY
     Dates: start: 20101001, end: 20101101
  4. CALCIUM WITH VITAMIN D [Concomitant]
     Indication: MINERAL SUPPLEMENTATION

REACTIONS (2)
  - LIPOMA [None]
  - SURGERY [None]
